FAERS Safety Report 13354082 (Version 1)
Quarter: 2017Q1

REPORT INFORMATION
  Report Type: Spontaneous
  Country: US (occurrence: US)
  Receive Date: 20170320
  Receipt Date: 20170320
  Transmission Date: 20170429
  Serious: No
  Sender: FDA-Public Use
  Company Number: None

PATIENT
  Age: 73 Year
  Sex: Male
  Weight: 83.25 kg

DRUGS (3)
  1. MULTIVITAMIN [Concomitant]
     Active Substance: VITAMINS
  2. DIAZEPAM. [Concomitant]
     Active Substance: DIAZEPAM
  3. DESIPRAMINE [Suspect]
     Active Substance: DESIPRAMINE
     Indication: DEPRESSION
     Dosage: ?          QUANTITY:100 TABLET(S);?
     Route: 048
     Dates: start: 20170303, end: 20170318

REACTIONS (4)
  - Chills [None]
  - Hyperhidrosis [None]
  - Influenza [None]
  - Night sweats [None]

NARRATIVE: CASE EVENT DATE: 20170315
